FAERS Safety Report 4655869-2 (Version None)
Quarter: 2005Q2

REPORT INFORMATION
  Report Type: 
  Country: None (occurrence: None)
  Receive Date: 20050505
  Receipt Date: 20050422
  Transmission Date: 20051028
  Serious: Yes (Other)
  Sender: FDA-Public Use
  Company Number: 2005065003

PATIENT
  Age: 62 Year
  Sex: Female

DRUGS (2)
  1. BEXTRA [Suspect]
     Indication: RHEUMATOID ARTHRITIS
     Dosage: 10 MG (1 D),
  2. NAPROXEN SODIUM [Suspect]
     Indication: ILL-DEFINED DISORDER

REACTIONS (3)
  - CONDITION AGGRAVATED [None]
  - DRUG INTOLERANCE [None]
  - NEUTROPENIA [None]
